FAERS Safety Report 10044458 (Version 2)
Quarter: 2014Q2

REPORT INFORMATION
  Report Type: Spontaneous
  Country: FR (occurrence: FR)
  Receive Date: 20140328
  Receipt Date: 20140430
  Transmission Date: 20141212
  Serious: Yes (Hospitalization, Other)
  Sender: FDA-Public Use
  Company Number: FR-PFIZER INC-2014085428

PATIENT
  Age: 40 Year
  Sex: Female
  Weight: 55 kg

DRUGS (2)
  1. ADVIL [Suspect]
     Indication: DYSMENORRHOEA
     Dosage: 400 MG, SINGLE
     Dates: start: 20140308, end: 20140308
  2. IRBESARTAN [Concomitant]
     Indication: HYPERTENSION
     Dosage: 150 MG, 1X/DAY
     Route: 048
     Dates: start: 20140129

REACTIONS (1)
  - Angioedema [Recovered/Resolved]
